FAERS Safety Report 18604330 (Version 4)
Quarter: 2024Q1

REPORT INFORMATION
  Report Type: Spontaneous
  Country: US (occurrence: US)
  Receive Date: 20201211
  Receipt Date: 20240307
  Transmission Date: 20240409
  Serious: Yes (Other)
  Sender: FDA-Public Use
  Company Number: US-JNJFOC-20201210460

PATIENT
  Age: 56 Year
  Sex: Female

DRUGS (2)
  1. ELMIRON [Suspect]
     Active Substance: PENTOSAN POLYSULFATE SODIUM
     Indication: Cystitis interstitial
     Route: 048
     Dates: start: 2000
  2. ELMIRON [Suspect]
     Active Substance: PENTOSAN POLYSULFATE SODIUM
     Route: 048
     Dates: start: 20130101, end: 20210101

REACTIONS (5)
  - Dry age-related macular degeneration [Not Recovered/Not Resolved]
  - Bipolar disorder [Unknown]
  - Retinal pigmentation [Unknown]
  - Anxiety disorder [Unknown]
  - Pain [Unknown]

NARRATIVE: CASE EVENT DATE: 20160101
